FAERS Safety Report 12458136 (Version 1)
Quarter: 2016Q2

REPORT INFORMATION
  Report Type: Spontaneous
  Country: US (occurrence: US)
  Receive Date: 20160613
  Receipt Date: 20160613
  Transmission Date: 20160815
  Serious: No
  Sender: FDA-Public Use
  Company Number: US-BRISTOL-MYERS SQUIBB COMPANY-BMS-2016-045452

PATIENT
  Age: 12 Year
  Sex: Male

DRUGS (1)
  1. HYDROXYUREA. [Suspect]
     Active Substance: HYDROXYUREA
     Indication: PAIN
     Dosage: 19 MG/KG, UNK
     Route: 065

REACTIONS (2)
  - Abdominal pain [Unknown]
  - Drug administered to patient of inappropriate age [Unknown]
